FAERS Safety Report 10792427 (Version 3)
Quarter: 2015Q1

REPORT INFORMATION
  Report Type: Spontaneous
  Country: GR (occurrence: GR)
  Receive Date: 20150213
  Receipt Date: 20150302
  Transmission Date: 20150721
  Serious: Yes (Hospitalization, Other)
  Sender: FDA-Public Use
  Company Number: GR-PFIZER INC-2015051516

PATIENT
  Age: 63 Year
  Sex: Male

DRUGS (15)
  1. PREGABALIN. [Suspect]
     Active Substance: PREGABALIN
     Indication: MUSCLE SPASTICITY
     Dosage: 75 MG, 2X/DAY (MORNING, EVENING)
  2. DIAZEPAM. [Suspect]
     Active Substance: DIAZEPAM
     Indication: MUSCLE SPASTICITY
     Dosage: 50 MG, DAILY
  3. BACLOFEN. [Suspect]
     Active Substance: BACLOFEN
     Indication: MUSCLE SPASTICITY
     Dosage: 20 MG, (2 TABS EVERY 2-4 HOURS)
     Route: 048
  4. BACLOFEN. [Suspect]
     Active Substance: BACLOFEN
     Dosage: 100 ?G, DAILY
     Route: 037
  5. GABAPENTIN. [Suspect]
     Active Substance: GABAPENTIN
     Indication: MUSCLE SPASTICITY
     Dosage: 800 MG, 3X/DAY (MORINING, NOON, EVENING)
  6. BACLOFEN. [Suspect]
     Active Substance: BACLOFEN
     Dosage: 0.2 MG, UNK
     Route: 037
  7. AMITRIPTYLINE [Suspect]
     Active Substance: AMITRIPTYLINE
     Indication: MUSCLE SPASTICITY
     Dosage: 75 MG, 2X/DAY (MORNING AND EVENING)
  8. AMITRIPTYLINE [Suspect]
     Active Substance: AMITRIPTYLINE
     Dosage: 50 MG, DAILY
  9. ACETAMINOPHEN AND CODEINE [Suspect]
     Active Substance: ACETAMINOPHEN\CODEINE PHOSPHATE
     Indication: MUSCLE SPASTICITY
     Dosage: UNK UNK, 4X/DAY
  10. MORPHIN [Suspect]
     Active Substance: MORPHINE
     Indication: PAIN
     Dosage: 30 MG, 4X/DAY
  11. BACLOFEN. [Suspect]
     Active Substance: BACLOFEN
     Dosage: 150 ?G, DAILY
     Route: 037
  12. CLONIDINE. [Suspect]
     Active Substance: CLONIDINE
     Dosage: 30 ?G, DAILY
     Route: 037
  13. BACLOFEN. [Suspect]
     Active Substance: BACLOFEN
     Indication: MUSCLE SPASTICITY
     Dosage: 50 ?G, UNK
     Route: 037
  14. CLONIDINE. [Suspect]
     Active Substance: CLONIDINE
     Indication: PAIN
     Dosage: 5 ?G, DAILY
     Route: 037
  15. MORPHIN [Suspect]
     Active Substance: MORPHINE
     Dosage: 0.4 MG, UNK

REACTIONS (3)
  - Drug ineffective for unapproved indication [Unknown]
  - Pain [Recovered/Resolved]
  - Hypotension [Recovered/Resolved]
